FAERS Safety Report 5196551-5 (Version None)
Quarter: 2006Q4

REPORT INFORMATION
  Report Type: 
  Country: None (occurrence: None)
  Receive Date: 20061222
  Receipt Date: 20061213
  Transmission Date: 20070319
  Serious: Yes (Death, Hospitalization)
  Sender: FDA-Public Use
  Company Number: E2020-00647-SPO-DE

PATIENT
  Sex: Male

DRUGS (5)
  1. ARICEPT [Suspect]
     Indication: DEMENTIA
     Dosage: 5 MG, 1 IN 1 D; ORAL; 5 MG, 1 IN 1 D; ORAL, 5MG, 1 IN 1 D, ORAL
     Route: 048
     Dates: start: 20060101, end: 20060101
  2. ARICEPT [Suspect]
     Indication: DEMENTIA
     Dosage: 5 MG, 1 IN 1 D; ORAL; 5 MG, 1 IN 1 D; ORAL, 5MG, 1 IN 1 D, ORAL
     Route: 048
     Dates: start: 20060101, end: 20061001
  3. ARICEPT [Suspect]
     Indication: DEMENTIA
     Dosage: 5 MG, 1 IN 1 D; ORAL; 5 MG, 1 IN 1 D; ORAL, 5MG, 1 IN 1 D, ORAL
     Route: 048
     Dates: start: 20040101
  4. MARCUMAR [Concomitant]
  5. MORPHINE [Concomitant]

REACTIONS (5)
  - FALL [None]
  - HAEMOGLOBIN DECREASED [None]
  - MELAENA [None]
  - PNEUMONIA [None]
  - RIB FRACTURE [None]
